FAERS Safety Report 4760595-5 (Version None)
Quarter: 2005Q3

REPORT INFORMATION
  Report Type: 
  Country: None (occurrence: None)
  Receive Date: 20050826
  Receipt Date: 20050314
  Transmission Date: 20060218
  Serious: Yes (Death)
  Sender: FDA-Public Use
  Company Number: USA-2004-0017135

PATIENT
  Age: 46 Year
  Sex: Female

DRUGS (4)
  1. OXYCONTIN [Suspect]
     Indication: PAIN
     Dosage: 80 MG TID
  2. SOMA [Concomitant]
  3. XANAX [Concomitant]
  4. HYDROCODONE BITARTRATE [Concomitant]

REACTIONS (1)
  - MULTIPLE DRUG OVERDOSE [None]
